FAERS Safety Report 12159801 (Version 1)
Quarter: 2016Q1

REPORT INFORMATION
  Report Type: Spontaneous
  Country: US (occurrence: US)
  Receive Date: 20160308
  Receipt Date: 20160308
  Transmission Date: 20160526
  Serious: Yes (Other)
  Sender: FDA-Public Use
  Company Number: US-ASTELLAS-2016US008204

PATIENT
  Age: 85 Year
  Sex: Female

DRUGS (2)
  1. VESICARE [Suspect]
     Active Substance: SOLIFENACIN SUCCINATE
     Indication: INCONTINENCE
     Route: 065
  2. VESICARE [Suspect]
     Active Substance: SOLIFENACIN SUCCINATE
     Indication: INCONTINENCE
     Route: 065
     Dates: start: 20151120

REACTIONS (6)
  - Dry mouth [Unknown]
  - Macular degeneration [Unknown]
  - Treatment noncompliance [Unknown]
  - Feeling hot [Unknown]
  - Vision blurred [Unknown]
  - Drug ineffective [Unknown]
